FAERS Safety Report 8484796-8 (Version None)
Quarter: 2012Q3

REPORT INFORMATION
  Report Type: 
  Country: None (occurrence: None)
  Receive Date: 20120703
  Receipt Date: 20120625
  Transmission Date: 20120928
  Serious: Yes (Hospitalization)
  Sender: FDA-Public Use
  Company Number: US-BAYER-201016116NA

PATIENT
  Age: 50 Year
  Sex: Female
  Weight: 74.83 kg

DRUGS (9)
  1. IBUPROFEN [Concomitant]
  2. ALBUTEROL [Concomitant]
  3. YASMIN [Suspect]
     Indication: MENORRHAGIA
     Dosage: UNK UNK, QD
     Route: 048
     Dates: start: 20060801, end: 20070301
  4. SYNTHROID [Concomitant]
     Route: 048
  5. NORVASC [Concomitant]
     Route: 048
  6. XANAX [Concomitant]
     Dosage: 0.5MG Q.12H.
     Route: 048
  7. LEVSIN PB [Concomitant]
     Dosage: 0.125 MG, UNK
     Route: 048
     Dates: start: 20070301
  8. PROVENTIL-HFA [Concomitant]
     Dosage: 2 PUFF(S), UNK
     Dates: start: 20061201
  9. HYOSCYAMINE [Concomitant]
     Dosage: 0.125 MG, UNK
     Dates: start: 20070323

REACTIONS (5)
  - DEEP VEIN THROMBOSIS [None]
  - PAIN IN EXTREMITY [None]
  - DYSPNOEA [None]
  - PULMONARY EMBOLISM [None]
  - OEDEMA PERIPHERAL [None]
